FAERS Safety Report 14328716 (Version 1)
Quarter: 2017Q4

REPORT INFORMATION
  Report Type: Spontaneous
  Country: US (occurrence: US)
  Receive Date: 20171227
  Receipt Date: 20171227
  Transmission Date: 20180321
  Serious: No
  Sender: FDA-Public Use
  Company Number: US-SUNOVION-2017SUN005265

PATIENT
  Sex: Male

DRUGS (2)
  1. COGENTIN [Concomitant]
     Active Substance: BENZTROPINE MESYLATE
  2. LATUDA [Suspect]
     Active Substance: LURASIDONE HYDROCHLORIDE
     Route: 048

REACTIONS (1)
  - Dysphagia [Unknown]
